FAERS Safety Report 5636183-5 (Version None)
Quarter: 2008Q1

REPORT INFORMATION
  Report Type: 
  Country: None (occurrence: None)
  Receive Date: 20080220
  Receipt Date: 20080220
  Transmission Date: 20080703
  Serious: Yes (Hospitalization)
  Sender: FDA-Public Use
  Company Number: None

PATIENT
  Sex: Male
  Weight: 98 kg

DRUGS (2)
  1. CISPLATIN [Suspect]
     Dosage: 469 MG
  2. CAMPTOSAR [Suspect]
     Dosage: 1023 MG

REACTIONS (6)
  - ERYTHEMA [None]
  - INCISION SITE OEDEMA [None]
  - POSTOPERATIVE WOUND COMPLICATION [None]
  - PURULENCE [None]
  - PYREXIA [None]
  - WOUND DRAINAGE [None]
